FAERS Safety Report 4678004-3 (Version None)
Quarter: 2005Q2

REPORT INFORMATION
  Report Type: 
  Country: None (occurrence: None)
  Receive Date: 20050531
  Receipt Date: 20050516
  Transmission Date: 20051028
  Serious: Yes (Other)
  Sender: FDA-Public Use
  Company Number: 2005AP02891

PATIENT
  Age: 17446 Day
  Sex: Male

DRUGS (35)
  1. IRESSA [Suspect]
     Indication: OROPHARYNGEAL CANCER STAGE UNSPECIFIED
     Dates: start: 20041206, end: 20050515
  2. CISPLATIN [Suspect]
     Indication: OROPHARYNGEAL CANCER STAGE UNSPECIFIED
     Route: 042
     Dates: start: 20041213, end: 20041213
  3. CISPLATIN [Suspect]
     Route: 042
     Dates: start: 20050103, end: 20050103
  4. CISPLATIN [Suspect]
     Route: 042
     Dates: start: 20050124, end: 20050124
  5. RADIOTHERAPY [Suspect]
     Indication: OROPHARYNGEAL CANCER STAGE UNSPECIFIED
     Dates: start: 20041213, end: 20041217
  6. RADIOTHERAPY [Suspect]
     Dates: start: 20041220, end: 20041224
  7. RADIOTHERAPY [Suspect]
     Dates: start: 20041227, end: 20041231
  8. RADIOTHERAPY [Suspect]
     Dates: start: 20050103, end: 20050105
  9. RADIOTHERAPY [Suspect]
     Dates: start: 20050107, end: 20050108
  10. RADIOTHERAPY [Suspect]
     Dates: start: 20050110, end: 20050114
  11. RADIOTHERAPY [Suspect]
     Dates: start: 20050117, end: 20050120
  12. RADIOTHERAPY [Suspect]
     Dates: start: 20050122, end: 20050122
  13. RADIOTHERAPY [Suspect]
     Dates: start: 20050127, end: 20050127
  14. EMESET [Concomitant]
     Indication: PROPHYLAXIS
     Route: 048
     Dates: start: 20041214, end: 20041214
  15. EMESET [Concomitant]
     Route: 042
     Dates: start: 20041213, end: 20041213
  16. EMESET [Concomitant]
     Route: 042
     Dates: start: 20050103, end: 20050103
  17. EMESET [Concomitant]
     Route: 042
     Dates: start: 20050124, end: 20050124
  18. MANNITOL [Concomitant]
     Indication: PREMEDICATION
     Dates: start: 20051213, end: 20051213
  19. MANNITOL [Concomitant]
     Route: 042
     Dates: start: 20050103, end: 20050103
  20. MANNITOL [Concomitant]
     Route: 042
     Dates: start: 20050124, end: 20050124
  21. NUTRAL P [Concomitant]
     Indication: MEDICAL DIET
     Route: 048
     Dates: start: 20050105
  22. ATIVAN [Concomitant]
     Indication: INSOMNIA
     Route: 048
     Dates: start: 20050110, end: 20050114
  23. POTASSIUM CHLORIDE [Concomitant]
     Indication: PREMEDICATION
     Route: 042
     Dates: start: 20050124, end: 20050121
  24. NARCOGEN FORTE [Concomitant]
     Indication: PAIN
     Route: 048
     Dates: start: 20050125, end: 20050218
  25. NARCOGEN FORTE [Concomitant]
     Route: 048
     Dates: start: 20050218, end: 20050405
  26. DULCOLAX [Concomitant]
     Indication: PROPHYLAXIS
     Route: 048
     Dates: start: 20050125, end: 20050302
  27. DULCOLAX [Concomitant]
     Route: 048
     Dates: start: 20050317, end: 20050405
  28. SODIUM FLUORIDE [Concomitant]
     Indication: PROPHYLAXIS
     Dates: start: 20050129
  29. CIPLOX [Concomitant]
     Indication: WOUND
     Route: 048
     Dates: start: 20050314, end: 20050320
  30. BEPLEX FORTE [Concomitant]
     Indication: MEDICAL DIET
     Dates: start: 20050314, end: 20050320
  31. BEPLEX FORTE [Concomitant]
     Dates: start: 20050314, end: 20050320
  32. VOVERAN D [Concomitant]
     Indication: DYSPHAGIA
     Route: 048
     Dates: start: 20050405, end: 20050503
  33. ZINETAC [Concomitant]
     Indication: DYSPEPSIA
     Route: 048
     Dates: start: 20050426, end: 20050503
  34. MUCAINE [Concomitant]
     Indication: DYSPHAGIA
     Route: 048
     Dates: start: 20050426
  35. NEUROBION [Concomitant]
     Indication: NEUROPATHY
     Route: 048
     Dates: start: 20050426

REACTIONS (5)
  - DYSPHAGIA [None]
  - MACULAR DEGENERATION [None]
  - NEUROPATHY PERIPHERAL [None]
  - RASH PRURITIC [None]
  - VISUAL ACUITY REDUCED [None]
